FAERS Safety Report 4951600-1 (Version None)
Quarter: 2006Q1

REPORT INFORMATION
  Report Type: 
  Country: None (occurrence: None)
  Receive Date: 20060323
  Receipt Date: 20060314
  Transmission Date: 20060701
  Serious: Yes (Hospitalization)
  Sender: FDA-Public Use
  Company Number: 2006CG00483

PATIENT
  Age: 85 Year
  Sex: Female
  Weight: 75 kg

DRUGS (4)
  1. HYTACAND [Suspect]
     Route: 048
     Dates: end: 20060129
  2. ISOPTIN [Suspect]
     Route: 048
     Dates: end: 20060129
  3. COVERSYL [Suspect]
     Route: 048
     Dates: end: 20060129
  4. DIGOXIN [Suspect]
     Route: 048
     Dates: end: 20060129

REACTIONS (5)
  - ATRIOVENTRICULAR BLOCK FIRST DEGREE [None]
  - BRADYPNOEA [None]
  - COMA [None]
  - DRUG TOXICITY [None]
  - RESPIRATORY DISTRESS [None]
